FAERS Safety Report 20359755 (Version 1)
Quarter: 2022Q1

REPORT INFORMATION
  Report Type: Spontaneous
  Country: US (occurrence: US)
  Receive Date: 20220121
  Receipt Date: 20220121
  Transmission Date: 20220423
  Serious: No
  Sender: FDA-Public Use
  Company Number: US-TERSERA THERAPEUTICS LLC-2021TRS004423

PATIENT

DRUGS (7)
  1. PRIALT [Suspect]
     Active Substance: ZICONOTIDE ACETATE
     Indication: Post laminectomy syndrome
     Dosage: UNK
     Route: 065
  2. PRIALT [Suspect]
     Active Substance: ZICONOTIDE ACETATE
     Dosage: 2.5 MCG, QD
     Route: 037
  3. PRIALT [Suspect]
     Active Substance: ZICONOTIDE ACETATE
     Dosage: 4 MCG, QD
     Route: 037
  4. BUPIVACAINE [Suspect]
     Active Substance: BUPIVACAINE
     Indication: Post laminectomy syndrome
     Dosage: UNK MG, QD
     Route: 037
     Dates: start: 202111
  5. BUPIVACAINE [Suspect]
     Active Substance: BUPIVACAINE
     Indication: Pain
  6. MORPHINE [Suspect]
     Active Substance: MORPHINE
     Indication: Post laminectomy syndrome
     Dosage: UNK MG, QD
     Route: 037
  7. MORPHINE [Suspect]
     Active Substance: MORPHINE
     Indication: Pain

REACTIONS (4)
  - Hypoaesthesia [Not Recovered/Not Resolved]
  - Diarrhoea [Not Recovered/Not Resolved]
  - Drug ineffective [Unknown]
  - Off label use [Unknown]

NARRATIVE: CASE EVENT DATE: 20211101
